FAERS Safety Report 8318322-0 (Version None)
Quarter: 2012Q2

REPORT INFORMATION
  Report Type: 
  Country: None (occurrence: None)
  Receive Date: 20120427
  Receipt Date: 20120425
  Transmission Date: 20120825
  Serious: Yes (Death)
  Sender: FDA-Public Use
  Company Number: FR-ROCHE-1063401

PATIENT
  Age: 55 Year
  Sex: Male

DRUGS (1)
  1. AVASTIN [Suspect]
     Indication: COLORECTAL CANCER METASTATIC

REACTIONS (1)
  - SEPSIS [None]
